FAERS Safety Report 4873271-5 (Version None)
Quarter: 2005Q4

REPORT INFORMATION
  Report Type: 
  Country: None (occurrence: None)
  Receive Date: 20051201
  Receipt Date: 20050801
  Transmission Date: 20060501
  Serious: No
  Sender: FDA-Public Use
  Company Number: 2005PV000868

PATIENT
  Age: 64 Year
  Sex: Female
  Weight: 83.4619 kg

DRUGS (6)
  1. BYETTA [Suspect]
     Indication: DIABETES MELLITUS NON-INSULIN-DEPENDENT
     Dosage: 5 MCG; BID; SC
     Route: 058
     Dates: start: 20050705
  2. METFORMIN HYDROCHLORIDE [Concomitant]
  3. AVANDIA [Concomitant]
  4. PLAVIX [Concomitant]
  5. SYNTHROID [Concomitant]
  6. PRILOSEC [Concomitant]

REACTIONS (4)
  - DYSPEPSIA [None]
  - ERUCTATION [None]
  - NAUSEA [None]
  - VOMITING [None]
